FAERS Safety Report 12729924 (Version 1)
Quarter: 2016Q3

REPORT INFORMATION
  Report Type: Report from Study
  Country: US (occurrence: US)
  Receive Date: 20160909
  Receipt Date: 20160909
  Transmission Date: 20161109
  Serious: Yes (Other)
  Sender: FDA-Public Use
  Company Number: US-SAOL THERAPEUTICS-2016SAO00301

PATIENT
  Sex: Male

DRUGS (10)
  1. OXYCONTIN [Concomitant]
     Active Substance: OXYCODONE HYDROCHLORIDE
     Dosage: UNKNOWN
  2. COMPOUNDED BACLOFEN [Suspect]
     Active Substance: BACLOFEN
     Indication: PAIN
     Dosage: 125.01 ?G, \DAY
     Route: 037
     Dates: start: 20160316
  3. BUPIVACAINE. [Suspect]
     Active Substance: BUPIVACAINE
     Dosage: 8.0905 MG, \DAY
     Route: 037
     Dates: start: 20160309, end: 20160316
  4. DILAUDID [Suspect]
     Active Substance: HYDROMORPHONE HYDROCHLORIDE
     Dosage: 1.4982 MG, \DAY
     Route: 037
     Dates: start: 20160309, end: 20160316
  5. OXYDODONE [Concomitant]
     Active Substance: OXYCODONE
     Dosage: UNKNOWN
  6. CLONIDINE. [Suspect]
     Active Substance: CLONIDINE
     Dosage: 74.912 ?G, \DAY
     Route: 037
     Dates: start: 20160309, end: 20160316
  7. CLONIDINE. [Suspect]
     Active Substance: CLONIDINE
     Dosage: 62.51 ?G, \DAY
     Route: 037
     Dates: start: 20160316
  8. BUPIVACAINE. [Suspect]
     Active Substance: BUPIVACAINE
     Dosage: 7.501 MG, \DAY
     Route: 037
     Dates: start: 20160316
  9. DILAUDID [Suspect]
     Active Substance: HYDROMORPHONE HYDROCHLORIDE
     Dosage: 1.2501 MG, \DAY
     Route: 037
     Dates: start: 20160316
  10. COMPOUNDED BACLOFEN [Suspect]
     Active Substance: BACLOFEN
     Indication: PAIN
     Dosage: 149.82 ?G, \DAY
     Route: 037
     Dates: start: 20160309, end: 20160316

REACTIONS (2)
  - Implant site extravasation [Recovered/Resolved]
  - Off label use [Unknown]
